FAERS Safety Report 21376745 (Version 2)
Quarter: 2022Q4

REPORT INFORMATION
  Report Type: Spontaneous
  Country: US (occurrence: US)
  Receive Date: 20220926
  Receipt Date: 20221011
  Transmission Date: 20230113
  Serious: No
  Sender: FDA-Public Use
  Company Number: US-INSUD PHARMA-2209US03729

PATIENT

DRUGS (1)
  1. CLOBETASOL [Suspect]
     Active Substance: CLOBETASOL
     Indication: Skin disorder
     Dosage: UNKNOWN
     Route: 061

REACTIONS (3)
  - Dry skin [Recovered/Resolved]
  - Poor quality product administered [Unknown]
  - Product physical consistency issue [Recovered/Resolved]
